FAERS Safety Report 18612099 (Version 1)
Quarter: 2020Q4

REPORT INFORMATION
  Report Type: Spontaneous
  Country: US (occurrence: US)
  Receive Date: 20201214
  Receipt Date: 20201214
  Transmission Date: 20210114
  Serious: No
  Sender: FDA-Public Use
  Company Number: None

PATIENT
  Age: 76 Year
  Sex: Female
  Weight: 92.97 kg

DRUGS (14)
  1. DIGOXIN 125 MCG, ORAL [Concomitant]
  2. CAPECITABINE. [Suspect]
     Active Substance: CAPECITABINE
     Indication: MALIGNANT NEOPLASM OF THYMUS
     Route: 048
     Dates: start: 20200612
  3. ZOFRAN 8 MG, ORAL [Concomitant]
  4. METOPROLOL TARTRATE 25 MG, ORAL [Concomitant]
  5. MUPIROCIN 2%, TOPICAL [Concomitant]
  6. CAPECITABINE. [Suspect]
     Active Substance: CAPECITABINE
     Indication: MALIGNANT NEOPLASM OF THYMUS
     Route: 048
     Dates: start: 20200612
  7. ATORVASTATIN 40 MG, ORAL [Concomitant]
  8. PROTONIX 40 MG, ORAL [Concomitant]
  9. FERROUS SULFATE 325 MG, ORAL [Concomitant]
  10. KLOR-CON M20, ORAL [Concomitant]
  11. L-METHYLFOLATE-ALGAE-B12-B6, ORAL [Concomitant]
  12. PROCHLORPERAZINE 10 MG, ORAL [Concomitant]
  13. BACITRACIN 500 UNITS, TOPICAL [Concomitant]
  14. VITAMIN B SUPPLEMENT, ORAL [Concomitant]

REACTIONS (1)
  - Erythema [None]

NARRATIVE: CASE EVENT DATE: 20201214
